FAERS Safety Report 25887563 (Version 1)
Quarter: 2025Q4

REPORT INFORMATION
  Report Type: Report from Study
  Country: US (occurrence: US)
  Receive Date: 20251007
  Receipt Date: 20251007
  Transmission Date: 20260119
  Serious: Yes (Other)
  Sender: SANDOZ
  Company Number: US-002147023-NVSC2020US279055

PATIENT
  Sex: Female

DRUGS (1)
  1. GLATOPA [Suspect]
     Active Substance: GLATIRAMER ACETATE
     Indication: Multiple sclerosis
     Dosage: 40 MG, TIW
     Route: 058

REACTIONS (7)
  - Blindness unilateral [Unknown]
  - Renal injury [Unknown]
  - Fatigue [Recovering/Resolving]
  - Injection site indentation [Unknown]
  - Vaccination site pain [Recovering/Resolving]
  - Poor quality sleep [Recovering/Resolving]
  - Device defective [Unknown]
